FAERS Safety Report 4842536-5 (Version None)
Quarter: 2005Q4

REPORT INFORMATION
  Report Type: 
  Country: None (occurrence: None)
  Receive Date: 20051201
  Receipt Date: 20051121
  Transmission Date: 20060501
  Serious: Yes (Hospitalization)
  Sender: FDA-Public Use
  Company Number: US-JNJFOC-20051004156

PATIENT
  Sex: Male
  Weight: 112.49 kg

DRUGS (10)
  1. REMICADE [Suspect]
     Indication: PERIRECTAL ABSCESS
     Route: 042
  2. REMICADE [Suspect]
     Indication: CROHN'S DISEASE
     Route: 042
  3. NORVASC [Concomitant]
  4. NEXIUM [Concomitant]
  5. LASIX [Concomitant]
  6. COMBIVENT [Concomitant]
  7. COMBIVENT [Concomitant]
  8. PREDNISONE [Concomitant]
  9. SPIRONOLACTONE [Concomitant]
  10. PROTONIX [Concomitant]

REACTIONS (4)
  - ABSCESS [None]
  - GASTROINTESTINAL CARCINOMA [None]
  - HEPATIC ENCEPHALOPATHY [None]
  - RESPIRATORY FAILURE [None]
